FAERS Safety Report 24658719 (Version 1)
Quarter: 2024Q4

REPORT INFORMATION
  Report Type: Spontaneous
  Country: PT (occurrence: PT)
  Receive Date: 20241125
  Receipt Date: 20241125
  Transmission Date: 20250114
  Serious: Yes (Other)
  Sender: ALIMERA
  Company Number: PT-ALIMERA SCIENCES INC.-PT-A16013-24-000651

PATIENT
  Age: 63 Year
  Sex: Female

DRUGS (1)
  1. FLUOCINOLONE ACETONIDE [Suspect]
     Active Substance: FLUOCINOLONE ACETONIDE
     Indication: Diabetic retinal oedema
     Dosage: 0.25 MICROGRAM, QD -RIGHT EYE
     Route: 031
     Dates: start: 201904

REACTIONS (5)
  - Retinal degeneration [Unknown]
  - Glaucoma [Unknown]
  - Ocular hypertension [Unknown]
  - Glaucoma drainage device placement [Recovered/Resolved]
  - Trabeculoplasty [Recovered/Resolved]

NARRATIVE: CASE EVENT DATE: 20201001
